FAERS Safety Report 14427190 (Version 2)
Quarter: 2024Q1

REPORT INFORMATION
  Report Type: Spontaneous
  Country: US (occurrence: US)
  Receive Date: 20180123
  Receipt Date: 20240207
  Transmission Date: 20240410
  Serious: Yes (Death)
  Sender: FDA-Public Use
  Company Number: US-IMPAX LABORATORIES, INC-2017-IPXL-03520

PATIENT
  Sex: Male
  Weight: 58.957 kg

DRUGS (1)
  1. RYTARY [Suspect]
     Active Substance: CARBIDOPA\LEVODOPA
     Indication: Parkinson^s disease
     Dosage: 61.25/245MG
     Route: 065

REACTIONS (4)
  - Adverse event [Fatal]
  - Fall [Unknown]
  - Brain fog [Unknown]
  - Fatigue [Unknown]
